FAERS Safety Report 6478892-4 (Version None)
Quarter: 2009Q4

REPORT INFORMATION
  Report Type: 
  Country: None (occurrence: None)
  Receive Date: 20091207
  Receipt Date: 20090420
  Transmission Date: 20100525
  Serious: No
  Sender: FDA-Public Use
  Company Number: US-AMGEN-KDL338346

PATIENT
  Sex: Female
  Weight: 62.7 kg

DRUGS (7)
  1. ENBREL [Suspect]
     Indication: RHEUMATOID ARTHRITIS
     Route: 058
     Dates: start: 20070301
  2. METHOTREXATE [Concomitant]
     Dates: start: 20060901
  3. FOLIC ACID [Concomitant]
  4. UNKNOWN [Concomitant]
  5. SYNTHROID [Concomitant]
  6. FOSAMAX [Concomitant]
  7. CALCIUM [Concomitant]

REACTIONS (5)
  - FALL [None]
  - INJECTION SITE PAIN [None]
  - INJECTION SITE REACTION [None]
  - RIB FRACTURE [None]
  - WRIST FRACTURE [None]
